FAERS Safety Report 5348062-1 (Version None)
Quarter: 2007Q2

REPORT INFORMATION
  Report Type: 
  Country: None (occurrence: None)
  Receive Date: 20070606
  Receipt Date: 20070525
  Transmission Date: 20071010
  Serious: Yes (Hospitalization)
  Sender: FDA-Public Use
  Company Number: AU-GENENTECH-241005

PATIENT
  Sex: Female
  Weight: 83 kg

DRUGS (9)
  1. BLINDED RANIBIZUMAB [Suspect]
     Indication: MACULAR DEGENERATION
     Dates: start: 20061120, end: 20070327
  2. BLINDED SHAM INJECTION [Suspect]
     Indication: MACULAR DEGENERATION
     Dates: start: 20061120, end: 20070327
  3. LANTUS [Concomitant]
     Indication: DRUG USE FOR UNKNOWN INDICATION
  4. GLUCOPHAGE [Concomitant]
     Indication: DRUG USE FOR UNKNOWN INDICATION
  5. DIAMICRON [Concomitant]
     Indication: DRUG USE FOR UNKNOWN INDICATION
  6. LIPITOR [Concomitant]
     Indication: DRUG USE FOR UNKNOWN INDICATION
  7. PANTOPRAZOLE SODIUM [Concomitant]
     Indication: DRUG USE FOR UNKNOWN INDICATION
  8. RENITEC [Concomitant]
     Indication: DRUG USE FOR UNKNOWN INDICATION
  9. CARDIZEM CD [Concomitant]
     Indication: DRUG USE FOR UNKNOWN INDICATION

REACTIONS (3)
  - CANDIDA ENDOPHTHALMITIS [None]
  - VISUAL ACUITY REDUCED [None]
  - VITREOUS DETACHMENT [None]
